FAERS Safety Report 17439631 (Version 1)
Quarter: 2020Q1

REPORT INFORMATION
  Report Type: Spontaneous
  Country: US (occurrence: US)
  Receive Date: 20200204
  Receipt Date: 20200204
  Transmission Date: 20200409
  Serious: Yes (Hospitalization)
  Sender: FDA-Public Use
  Company Number: None

PATIENT
  Age: 65 Year
  Sex: Male
  Weight: 134 kg

DRUGS (2)
  1. SULFAMETHOXAZOLE/TRIMETHOPRIM (SULFAMETHOXAZOLE 800MG [Suspect]
     Active Substance: SULFAMETHOXAZOLE\TRIMETHOPRIM
     Indication: URINARY TRACT INFECTION
     Dosage: ?          OTHER DOSE:800/160 MG;?
     Route: 048
     Dates: start: 20200117, end: 20200201
  2. SULFAMETHOXAZOLE/TRIMETHOPRIM (SULFAMETHOXAZOLE 800MG [Suspect]
     Active Substance: SULFAMETHOXAZOLE\TRIMETHOPRIM
     Indication: ORCHITIS
     Dosage: ?          OTHER DOSE:800/160 MG;?
     Route: 048
     Dates: start: 20200117, end: 20200201

REACTIONS (3)
  - Hyperkalaemia [None]
  - Blood urea increased [None]
  - Blood creatinine increased [None]

NARRATIVE: CASE EVENT DATE: 20200201
